FAERS Safety Report 4390166-4 (Version None)
Quarter: 2004Q3

REPORT INFORMATION
  Report Type: 
  Country: None (occurrence: None)
  Receive Date: 20040706
  Receipt Date: 20040419
  Transmission Date: 20050211
  Serious: Yes (Hospitalization)
  Sender: FDA-Public Use
  Company Number: FR-GLAXOSMITHKLINE-B0332550A

PATIENT
  Sex: Female
  Weight: 3.1 kg

DRUGS (7)
  1. SALBUMOL [Suspect]
     Indication: PREMATURE LABOUR
     Dosage: 2UNIT PER DAY
     Dates: start: 20020924, end: 20021016
  2. SALBUMOL [Suspect]
     Dates: start: 20021016, end: 20021016
  3. TARDYFERON [Suspect]
     Dosage: 1TAB PER DAY
     Dates: start: 20020924
  4. ATARAX [Suspect]
     Dosage: 1TAB PER DAY
     Dates: start: 20020924, end: 20020924
  5. CELESTENE [Suspect]
     Dosage: 1UNIT PER DAY
     Dates: start: 20020926, end: 20020927
  6. SPASFON [Suspect]
     Dates: start: 20021003, end: 20021006
  7. SYNTOCINON [Suspect]
     Dosage: 40IU PER DAY
     Dates: start: 20021017, end: 20021017

REACTIONS (6)
  - DRUG EXPOSURE DURING PREGNANCY [None]
  - DRUG EXPOSURE VIA BREAST MILK [None]
  - HYPOGLYCAEMIA NEONATAL [None]
  - JAUNDICE NEONATAL [None]
  - NEONATAL RESPIRATORY FAILURE [None]
  - RESPIRATORY FAILURE [None]
